FAERS Safety Report 8938496 (Version 1)
Quarter: 2012Q4

REPORT INFORMATION
  Report Type: 
  Country: CN (occurrence: CN)
  Receive Date: 20121130
  Receipt Date: 20121130
  Transmission Date: 20130627
  Serious: Yes (Death, Hospitalization)
  Sender: FDA-Public Use
  Company Number: PHHY2012CN108770

PATIENT
  Age: 57 Year
  Sex: Female
  Weight: 55 kg

DRUGS (4)
  1. TEGRETOL [Suspect]
     Indication: GLOSSODYNIA
     Dosage: 200 mg, QD, half a tablet each time once daily
     Route: 048
     Dates: start: 20090302, end: 20090308
  2. ORYZANOL [Concomitant]
     Dosage: 2 DF, TID
  3. COMPOUND VITAMIN B                 /02184201/ [Concomitant]
     Dosage: 2 DF, TID
  4. VIT. E [Concomitant]
     Dosage: 1 DF, QD, once daily, 1 capsule each time
     Route: 048

REACTIONS (7)
  - Erythema multiforme [Fatal]
  - Erythema [Fatal]
  - Rash generalised [Fatal]
  - Mental disorder [Unknown]
  - Heart rate increased [Unknown]
  - Respiratory rate increased [Unknown]
  - Pyrexia [Unknown]
